FAERS Safety Report 10703766 (Version 1)
Quarter: 2015Q1

REPORT INFORMATION
  Report Type: Spontaneous
  Country: US (occurrence: None)
  Receive Date: 20150108
  Receipt Date: 20150108
  Transmission Date: 20150721
  Serious: No
  Sender: FDA-Public Use
  Company Number: None

PATIENT
  Age: 44 Year
  Sex: Female
  Weight: 58.06 kg

DRUGS (1)
  1. XEOMIN [Suspect]
     Active Substance: INCOBOTULINUMTOXINA
     Indication: SKIN WRINKLING
     Dosage: 12 INJECTIONS; INTO THE MUSCLE

REACTIONS (6)
  - Hypoaesthesia [None]
  - Vision blurred [None]
  - Headache [None]
  - Anxiety [None]
  - Heart rate increased [None]
  - Confusional state [None]

NARRATIVE: CASE EVENT DATE: 20150105
